FAERS Safety Report 7400123-9 (Version None)
Quarter: 2011Q2

REPORT INFORMATION
  Report Type: 
  Country: None (occurrence: None)
  Receive Date: 20110407
  Receipt Date: 20101108
  Transmission Date: 20111010
  Serious: No
  Sender: FDA-Public Use
  Company Number: US-KINGPHARMUSA00001-K201001373

PATIENT
  Age: 52 Year
  Sex: Female

DRUGS (3)
  1. XANAX [Concomitant]
     Indication: ANXIETY
     Dosage: 25 MG, QHS
     Route: 048
  2. SKELAXIN [Suspect]
     Indication: BACK PAIN
     Dosage: 800 MG, TID
     Route: 048
     Dates: start: 20101027, end: 20101105
  3. OXYCODONE HCL [Concomitant]
     Indication: BACK PAIN
     Dosage: 15 MG OR 30 MG PRN
     Route: 048

REACTIONS (5)
  - SPEECH DISORDER [None]
  - OROPHARYNGEAL PAIN [None]
  - PHARYNGEAL OEDEMA [None]
  - THROAT IRRITATION [None]
  - PARAESTHESIA ORAL [None]
